FAERS Safety Report 20973997 (Version 1)
Quarter: 2022Q2

REPORT INFORMATION
  Report Type: Report from Study
  Country: US (occurrence: US)
  Receive Date: 20220617
  Receipt Date: 20220617
  Transmission Date: 20220721
  Serious: Yes (Other)
  Sender: FDA-Public Use
  Company Number: US-BRISTOL-MYERS SQUIBB COMPANY-2022-053195

PATIENT
  Age: 52 Year
  Sex: Female
  Weight: 98.88 kg

DRUGS (7)
  1. POMALYST [Suspect]
     Active Substance: POMALIDOMIDE
     Indication: Plasma cell myeloma
     Dosage: FOR 21 DAYS AND THEN REST FOR 7 DAYS
     Route: 048
     Dates: start: 202203
  2. OXYCODONE [Concomitant]
     Active Substance: OXYCODONE
     Indication: Product used for unknown indication
     Dosage: WHEN NEEDED
  3. ONDANSETRON [Concomitant]
     Active Substance: ONDANSETRON
     Indication: Product used for unknown indication
  4. TYLENOL [Concomitant]
     Active Substance: ACETAMINOPHEN
     Indication: Product used for unknown indication
     Dosage: WHEN NEEDED
  5. DEXAMETHASONE [Concomitant]
     Active Substance: DEXAMETHASONE
     Indication: Product used for unknown indication
     Dosage: 20MG WITH THE CHEMO, AND 20MG ON THE DAY AFTER
  6. BENADRYL [Concomitant]
     Active Substance: DIPHENHYDRAMINE HYDROCHLORIDE
     Indication: Product used for unknown indication
     Dosage: DURING CHEMO AND AS NEEDED
  7. LANTUS [Concomitant]
     Active Substance: INSULIN GLARGINE
     Indication: Product used for unknown indication
     Dosage: DURING CHEMOTHERAPY 20MG (APPROXIMATELY FOR 3 DAYS, EVERY 24 HOURS)

REACTIONS (4)
  - Fatigue [Not Recovered/Not Resolved]
  - Immunodeficiency [Unknown]
  - Gait inability [Unknown]
  - Back pain [Unknown]

NARRATIVE: CASE EVENT DATE: 20220301
